FAERS Safety Report 7110111-8 (Version None)
Quarter: 2010Q4

REPORT INFORMATION
  Report Type: 
  Country: None (occurrence: None)
  Receive Date: 20101118
  Receipt Date: 20101112
  Transmission Date: 20110411
  Serious: Yes (Death)
  Sender: FDA-Public Use
  Company Number: PHHY2010NZ77046

PATIENT

DRUGS (1)
  1. CLOZARIL [Suspect]

REACTIONS (1)
  - CONGESTIVE CARDIOMYOPATHY [None]
